FAERS Safety Report 5932184-8 (Version None)
Quarter: 2008Q4

REPORT INFORMATION
  Report Type: 
  Country: None (occurrence: None)
  Receive Date: 20081023
  Receipt Date: 20080617
  Transmission Date: 20090506
  Serious: Yes (Death, Hospitalization)
  Sender: FDA-Public Use
  Company Number: CL000302008

PATIENT
  Age: 83 Year
  Sex: Female

DRUGS (2)
  1. CIPROFLOXACIN [Suspect]
     Indication: URINARY TRACT INFECTION
     Dosage: 500MG ORAL
     Route: 048
     Dates: start: 20070320, end: 20070327
  2. CEFTAZIDIME [Suspect]
     Indication: URINARY TRACT INFECTION
     Route: 042
     Dates: start: 20070322, end: 20070331

REACTIONS (1)
  - CLOSTRIDIUM DIFFICILE COLITIS [None]
